FAERS Safety Report 12309248 (Version 1)
Quarter: 2016Q2

REPORT INFORMATION
  Report Type: Spontaneous
  Country: FR (occurrence: FR)
  Receive Date: 20160427
  Receipt Date: 20160427
  Transmission Date: 20160815
  Serious: Yes (Other)
  Sender: FDA-Public Use
  Company Number: FR-ACCORD-040047

PATIENT
  Age: 66 Year
  Sex: Female

DRUGS (3)
  1. GEMCITABINE ACCORD [Suspect]
     Active Substance: GEMCITABINE HYDROCHLORIDE
     Indication: OVARIAN EPITHELIAL CANCER
     Dosage: ENGTH: 1000 MG
     Route: 042
     Dates: start: 20151120
  2. CARBOPLATINE KABI [Suspect]
     Active Substance: CARBOPLATIN
     Indication: OVARIAN EPITHELIAL CANCER
     Dosage: STRENGTH: 10 MG/ML
     Route: 042
     Dates: start: 20151120, end: 20160205
  3. AVASTIN [Suspect]
     Active Substance: BEVACIZUMAB
     Indication: OVARIAN EPITHELIAL CANCER
     Dosage: STRENGTH: 25 MG/ML
     Route: 042
     Dates: start: 20151120

REACTIONS (6)
  - Oedema peripheral [Recovered/Resolved]
  - Paraesthesia [Recovered/Resolved]
  - Erythema [Recovered/Resolved]
  - Abdominal pain [Recovered/Resolved]
  - Hypersensitivity [Recovered/Resolved]
  - Pruritus [Recovered/Resolved]

NARRATIVE: CASE EVENT DATE: 20160205
